FAERS Safety Report 26142727 (Version 1)
Quarter: 2025Q4

REPORT INFORMATION
  Report Type: Spontaneous
  Country: US (occurrence: US)
  Receive Date: 20251211
  Receipt Date: 20251211
  Transmission Date: 20260117
  Serious: Yes (Other)
  Sender: Kenvue
  Company Number: US-KENVUE-20251200242

PATIENT
  Age: 36 Year
  Sex: Female
  Weight: 58.9 kg

DRUGS (13)
  1. TYLENOL [Suspect]
     Active Substance: ACETAMINOPHEN
     Indication: Pain
     Dosage: 500 MILLIGRAM, EVERY 6 HOURS, 1 TABLET , AS NEEDED
  2. VITAMIN D3 [Suspect]
     Active Substance: CHOLECALCIFEROL
     Indication: Product used for unknown indication
     Dosage: 1 DOSAGE FORM, ONCE A DAY (5000 UNITS)
  3. MOTRIN [Suspect]
     Active Substance: IBUPROFEN
     Indication: Pain
     Dosage: 800 MILLIGRAM, 4 TABLETS , EVERY 6 HOURS (AS NEEDED)
  4. MAGNESIUM OXIDE [Suspect]
     Active Substance: MAGNESIUM OXIDE
     Indication: Migraine
     Dosage: 400 MILLIGRAM, ONCE A DAY  (1 TABLET, AT BEDTIME)
     Dates: start: 20240717
  5. ZOMIG [Suspect]
     Active Substance: ZOLMITRIPTAN
     Indication: Migraine
     Dosage: 5 MILLIGRAM, 1 TABLET AS NEEDED (MAY REPEAT 1 TAB AFTER 2 HRS IF NEEDED) (NOT TO TAKE MORE THAN 2 TABS PER 24 HRS)
     Dates: start: 20240717
  6. FIORICET [Suspect]
     Active Substance: ACETAMINOPHEN\BUTALBITAL\CAFFEINE
     Indication: Product used for unknown indication
     Dosage: 1 DOSAGE FORM (50-325-40 MG PER TABLET), EVERY 8 HOURS (AS NEEDED)
     Route: 065
     Dates: start: 20240809, end: 20241113
  7. ZOFRAN [Suspect]
     Active Substance: ONDANSETRON HYDROCHLORIDE
     Indication: Nausea
     Dosage: 4 MILLIGRAM,(1 TAB),  TWICE A DAY (AS NEEDED), MAX 2 TABS A DAY
     Route: 065
     Dates: start: 20240809, end: 20241113
  8. ASPIRIN [Suspect]
     Active Substance: ASPIRIN
     Indication: Product used for unknown indication
     Dosage: 81 MILLIGRAM, ONCE A DAY (1 TABLET)
     Dates: start: 20240816
  9. KESIMPTA [Suspect]
     Active Substance: OFATUMUMAB
     Indication: Product used for unknown indication
     Dosage: 20 MILLIGRAM, 20 MG/0.4ML, INJECT 20 MG UNDER THE SKIN AS DIRECTED. 1 INJ SUBCUTANEOUS - WEEK 0, 1 AND 2. FROM WEEK 4 -EVERY 30 DAYS
  10. NICODERM CQ [Suspect]
     Active Substance: NICOTINE
     Indication: Product used for unknown indication
     Dosage: 14 MILLIGRAM, ONCE A DAY, 1 PATCH ON THE SKIN EVERY 24 HOURS
     Dates: start: 20241002
  11. WELLBUTRIN SR [Suspect]
     Active Substance: BUPROPION HYDROCHLORIDE
     Indication: Product used for unknown indication
     Dosage: 150 MILLIGRAM, (1 TABLET) ONCE A DAY (DAILY)
     Dates: start: 20241002
  12. WELLBUTRIN SR [Suspect]
     Active Substance: BUPROPION HYDROCHLORIDE
     Dosage: 150 MILLIGRAM, TWICE A DAY
  13. LYRICA [Suspect]
     Active Substance: PREGABALIN
     Indication: Product used for unknown indication
     Dosage: 75 MILLIGRAM, TWICE A DAY (1 CAPSULE)
     Dates: start: 20241002

REACTIONS (4)
  - Multiple sclerosis [Unknown]
  - Incorrect dose administered [Unknown]
  - Hypoaesthesia [Unknown]
  - Paraesthesia [Unknown]

NARRATIVE: CASE EVENT DATE: 20240801
